FAERS Safety Report 7797576-3 (Version None)
Quarter: 2011Q4

REPORT INFORMATION
  Report Type: 
  Country: None (occurrence: None)
  Receive Date: 20111005
  Receipt Date: 20110924
  Transmission Date: 20120403
  Serious: Yes (Hospitalization)
  Sender: FDA-Public Use
  Company Number: CA-JNJFOC-20110911129

PATIENT
  Sex: Male

DRUGS (3)
  1. REMICADE [Suspect]
     Indication: CROHN'S DISEASE
     Route: 042
     Dates: start: 20110906
  2. REMICADE [Suspect]
     Route: 042
     Dates: start: 20100101
  3. PERCOCET [Concomitant]
     Indication: NEPHROLITHIASIS
     Route: 065

REACTIONS (1)
  - NEPHROLITHIASIS [None]
